FAERS Safety Report 22093890 (Version 3)
Quarter: 2023Q1

REPORT INFORMATION
  Report Type: Report from Study
  Country: GB (occurrence: GB)
  Receive Date: 20230314
  Receipt Date: 20230325
  Transmission Date: 20230418
  Serious: No
  Sender: FDA-Public Use
  Company Number: GB-BRISTOL-MYERS SQUIBB COMPANY-2023-037358

PATIENT
  Age: 74 Year
  Sex: Male
  Weight: 72 kg

DRUGS (10)
  1. ALLOPURINOL [Concomitant]
     Active Substance: ALLOPURINOL
     Indication: Gout
     Dosage: 300 MG
     Route: 048
  2. SIMVASTATIN [Concomitant]
     Active Substance: SIMVASTATIN
     Indication: Type 2 diabetes mellitus
     Dosage: 20 MG
     Route: 048
  3. CARVEDILOL [Concomitant]
     Active Substance: CARVEDILOL
     Indication: Varices oesophageal
     Dosage: 3.125 MG
     Route: 048
     Dates: start: 20220527
  4. CIPROFLOXACIN [Concomitant]
     Active Substance: CIPROFLOXACIN
     Indication: Prophylaxis
     Dosage: 250 MG
     Route: 048
     Dates: start: 20221101
  5. DAPAGLIFLOZIN [Concomitant]
     Active Substance: DAPAGLIFLOZIN
     Indication: Type 2 diabetes mellitus
     Dosage: 10 MG
     Route: 048
     Dates: start: 20220524
  6. FUROSEMIDE [Concomitant]
     Active Substance: FUROSEMIDE
     Indication: Varices oesophageal
     Dosage: 40 MG
     Route: 048
     Dates: start: 20220527
  7. OMEPRAZOLE [Concomitant]
     Active Substance: OMEPRAZOLE
     Indication: Varices oesophageal
     Dosage: 40 MG
     Route: 048
     Dates: start: 20220527
  8. ONDANSETRON [Concomitant]
     Active Substance: ONDANSETRON
     Indication: Prophylaxis
     Dosage: 8 MG
     Route: 048
     Dates: start: 20220617
  9. OTOMIZE [Concomitant]
     Indication: Otitis externa
     Dosage: NOT APPLICABLE
     Route: 050
     Dates: start: 20230117
  10. THIAMINE [Concomitant]
     Active Substance: THIAMINE
     Indication: Prophylaxis
     Dosage: 100 MG
     Route: 048
     Dates: start: 20230119

REACTIONS (1)
  - Vitamin B1 decreased [Not Recovered/Not Resolved]

NARRATIVE: CASE EVENT DATE: 20230119
